FAERS Safety Report 4430040-8 (Version None)
Quarter: 2004Q3

REPORT INFORMATION
  Report Type: 
  Country: None (occurrence: None)
  Receive Date: 20040820
  Receipt Date: 20020516
  Transmission Date: 20050211
  Serious: Yes (Hospitalization)
  Sender: FDA-Public Use
  Company Number: US-MERCK-0205USA02074

PATIENT
  Age: 55 Year
  Sex: Male
  Weight: 102 kg

DRUGS (16)
  1. WELLBUTRIN [Concomitant]
     Route: 065
     Dates: start: 19960601, end: 20040301
  2. FLEXERIL [Concomitant]
     Route: 048
  3. ENBREL [Concomitant]
     Route: 058
  4. PEPCID [Concomitant]
     Route: 048
  5. FOLIC ACID [Concomitant]
     Route: 065
  6. GLUCOSAMINE [Concomitant]
     Route: 065
  7. PLAQUENIL [Concomitant]
     Route: 065
  8. METHOTREXATE [Concomitant]
     Route: 065
     Dates: start: 19960301, end: 20040301
  9. VIOXX [Suspect]
     Indication: ARTHRITIS
     Route: 048
     Dates: start: 20000301, end: 20001101
  10. VIOXX [Suspect]
     Route: 048
     Dates: start: 20001101
  11. VIOXX [Suspect]
     Route: 048
     Dates: end: 20001101
  12. VIOXX [Suspect]
     Indication: RHEUMATOID ARTHRITIS
     Route: 048
     Dates: start: 20000301, end: 20001101
  13. VIOXX [Suspect]
     Route: 048
     Dates: start: 20001101
  14. VIOXX [Suspect]
     Route: 048
     Dates: end: 20001101
  15. VIAGRA [Concomitant]
     Route: 065
  16. AMBIEN [Concomitant]
     Route: 065

REACTIONS (32)
  - ACUTE CORONARY SYNDROME [None]
  - ANGINA UNSTABLE [None]
  - AORTIC DILATATION [None]
  - AORTIC VALVE INCOMPETENCE [None]
  - BLOOD CHOLESTEROL INCREASED [None]
  - BLOOD GLUCOSE INCREASED [None]
  - BONE CYST [None]
  - BRONCHITIS [None]
  - CONDITION AGGRAVATED [None]
  - CORONARY ARTERY OCCLUSION [None]
  - CORONARY ARTERY STENOSIS [None]
  - DEPRESSION [None]
  - DILATATION ATRIAL [None]
  - DRY SKIN [None]
  - EMOTIONAL DISTRESS [None]
  - HEART RATE INCREASED [None]
  - HYPERLIPIDAEMIA [None]
  - HYPERTENSION [None]
  - INITIAL INSOMNIA [None]
  - INJURY [None]
  - MYOCARDIAL INFARCTION [None]
  - NOCTURIA [None]
  - OEDEMA PERIPHERAL [None]
  - OVERDOSE [None]
  - PERICARDITIS [None]
  - PLEURISY [None]
  - RHEUMATOID ARTHRITIS [None]
  - ROTATOR CUFF SYNDROME [None]
  - SCAR [None]
  - SINUS TACHYCARDIA [None]
  - UPPER RESPIRATORY TRACT INFECTION [None]
  - WHITE BLOOD CELL COUNT INCREASED [None]
